FAERS Safety Report 7824272-6 (Version None)
Quarter: 2011Q4

REPORT INFORMATION
  Report Type: 
  Country: None (occurrence: None)
  Receive Date: 20111019
  Receipt Date: 20111014
  Transmission Date: 20120403
  Serious: Yes (Hospitalization, Other)
  Sender: FDA-Public Use
  Company Number: US-ROXANE LABORATORIES, INC.-2011-RO-01468RO

PATIENT
  Age: 54 Year
  Sex: Female

DRUGS (12)
  1. ANTIHYPERTENSIVE THERAPY [Concomitant]
     Indication: HYPERTENSION
  2. PHENYTOIN [Suspect]
     Indication: CONVULSION
  3. CEFTRIAXONE [Suspect]
     Indication: EVIDENCE BASED TREATMENT
  4. PREDNISONE [Suspect]
     Indication: RENAL TRANSPLANT
  5. TACROLIMUS [Suspect]
     Indication: RENAL TRANSPLANT
  6. MYCOPHENOLATE MOFETIL [Suspect]
     Indication: IMMUNOSUPPRESSANT DRUG THERAPY
     Dosage: 1500 MG
  7. PREDNISONE [Suspect]
     Indication: IMMUNOSUPPRESSANT DRUG THERAPY
     Dosage: 5 MG
  8. TRIMETHOPRIM + SULFAMETHOXAZOLE [Suspect]
     Dosage: 900 MG
     Route: 042
  9. TRIMETHOPRIM + SULFAMETHOXAZOLE [Suspect]
     Indication: INFECTION PROPHYLAXIS
  10. TACROLIMUS [Suspect]
     Indication: IMMUNOSUPPRESSANT DRUG THERAPY
     Dosage: 35 MG
  11. MYCOPHENOLATE MOFETIL [Suspect]
     Indication: RENAL TRANSPLANT
  12. GANCICLOVIR [Suspect]
     Indication: INFECTION PROPHYLAXIS
     Dosage: 1000 MG

REACTIONS (5)
  - GRAND MAL CONVULSION [None]
  - VOMITING [None]
  - ZYGOMYCOSIS [None]
  - NAUSEA [None]
  - NOCARDIOSIS [None]
